FAERS Safety Report 16919803 (Version 1)
Quarter: 2019Q4

REPORT INFORMATION
  Report Type: Spontaneous
  Country: GB (occurrence: GB)
  Receive Date: 20191015
  Receipt Date: 20191015
  Transmission Date: 20200122
  Serious: Yes (Other)
  Sender: FDA-Public Use
  Company Number: GB-TEVA-2019-GB-1120750

PATIENT
  Age: 57 Year
  Sex: Female

DRUGS (9)
  1. DIAMORPHINE [Concomitant]
     Active Substance: DIAMORPHINE
     Route: 058
  2. DOCUSATE [Concomitant]
     Active Substance: DOCUSATE
  3. RANITIDINE. [Concomitant]
     Active Substance: RANITIDINE
     Dosage: VIA CONTINUOUS SUBCUTANEOUS INFUSION
     Route: 058
  4. BISOPROLOL [Concomitant]
     Active Substance: BISOPROLOL
  5. CITALOPRAM [Concomitant]
     Active Substance: CITALOPRAM HYDROBROMIDE
     Route: 048
  6. OCTREOTIDE. [Suspect]
     Active Substance: OCTREOTIDE
     Indication: PALLIATIVE CARE
     Dosage: 800 MICROGRAM
     Route: 058
     Dates: start: 20190729, end: 20190730
  7. OMEPRAZOLE. [Concomitant]
     Active Substance: OMEPRAZOLE
  8. OCTREOTIDE. [Suspect]
     Active Substance: OCTREOTIDE
     Indication: PALLIATIVE CARE
     Dosage: 500 MICROGRAM
     Route: 058
  9. LAXIDO [Concomitant]
     Active Substance: POLYETHYLENE GLYCOL 3350\POTASSIUM CHLORIDE\SODIUM BICARBONATE\SODIUM CHLORIDE

REACTIONS (3)
  - Biliary colic [Unknown]
  - Abdominal pain upper [Unknown]
  - Sphincter of Oddi dysfunction [Recovered/Resolved]

NARRATIVE: CASE EVENT DATE: 20190729
